FAERS Safety Report 23623971 (Version 2)
Quarter: 2024Q2

REPORT INFORMATION
  Report Type: Spontaneous
  Country: US (occurrence: US)
  Receive Date: 20240312
  Receipt Date: 20240506
  Transmission Date: 20240716
  Serious: No
  Sender: FDA-Public Use
  Company Number: US-BRISTOL-MYERS SQUIBB COMPANY-2024-029904

PATIENT
  Age: 63 Year
  Sex: Female
  Weight: 91.17 kg

DRUGS (1)
  1. REVLIMID [Suspect]
     Active Substance: LENALIDOMIDE
     Indication: Plasma cell myeloma
     Route: 048

REACTIONS (7)
  - Hepatic enzyme increased [Recovering/Resolving]
  - Hepatomegaly [Recovering/Resolving]
  - Faeces discoloured [Recovering/Resolving]
  - Nasopharyngitis [Recovering/Resolving]
  - Dry skin [Recovering/Resolving]
  - Diarrhoea [Recovering/Resolving]
  - Dry eye [Recovering/Resolving]
